FAERS Safety Report 9149241 (Version 1)
Quarter: 2013Q1

REPORT INFORMATION
  Report Type: Spontaneous
  Country: US (occurrence: US)
  Receive Date: 20130308
  Receipt Date: 20130308
  Transmission Date: 20140127
  Serious: No
  Sender: FDA-Public Use
  Company Number: US-PFIZER INC-2013078056

PATIENT
  Age: 31 Year
  Sex: Male
  Weight: 70.3 kg

DRUGS (1)
  1. VFEND [Suspect]
     Indication: FUNGAL INFECTION
     Dosage: 200 MG (BY TAKING FOUR TABLETS OF 50MG), 2X/DAY
     Route: 048
     Dates: start: 201212

REACTIONS (3)
  - Pollakiuria [Not Recovered/Not Resolved]
  - Chromaturia [Not Recovered/Not Resolved]
  - Vomiting [Not Recovered/Not Resolved]
